FAERS Safety Report 21537001 (Version 1)
Quarter: 2022Q4

REPORT INFORMATION
  Report Type: Spontaneous
  Country: US (occurrence: US)
  Receive Date: 20221101
  Receipt Date: 20221101
  Transmission Date: 20230113
  Serious: No
  Sender: FDA-Public Use
  Company Number: US-INSUD PHARMA-2210US04408

PATIENT

DRUGS (4)
  1. PROGESTERONE [Suspect]
     Active Substance: PROGESTERONE
     Indication: Hermaphroditism
     Dosage: 100 MILLIGRAM, TWICE A DAY
     Route: 048
     Dates: start: 202209, end: 2022
  2. PROGESTERONE [Suspect]
     Active Substance: PROGESTERONE
     Dosage: REDUCED DOSE TO 100 MILLIGRAM DAILY
     Dates: start: 2022, end: 20221015
  3. ESTRADIOL [Concomitant]
     Active Substance: ESTRADIOL
  4. ANTIHISTAMINES NOS [Concomitant]
     Active Substance: ANTIHISTAMINES NOS

REACTIONS (5)
  - Dry skin [Recovered/Resolved]
  - Pruritus [Recovered/Resolved]
  - Lethargy [Recovered/Resolved]
  - Contraindicated product administered [Unknown]
  - Product use in unapproved indication [Unknown]

NARRATIVE: CASE EVENT DATE: 20220101
